FAERS Safety Report 5332660-5 (Version None)
Quarter: 2007Q2

REPORT INFORMATION
  Report Type: 
  Country: None (occurrence: None)
  Receive Date: 20070523
  Receipt Date: 20070514
  Transmission Date: 20071010
  Serious: Yes (Life-Threatening)
  Sender: FDA-Public Use
  Company Number: JP-ABBOTT-07P-087-0368150-00

PATIENT
  Age: 88 Year
  Sex: Male

DRUGS (4)
  1. CLARITHROMYCIN [Suspect]
     Indication: HELICOBACTER INFECTION
     Dosage: 1 CARD DAILY
     Route: 048
     Dates: start: 20070417, end: 20070424
  2. LANSOPRAZOLE [Suspect]
     Indication: HELICOBACTER INFECTION
     Dosage: 1 CARD DAILY
     Route: 048
     Dates: start: 20070417, end: 20070424
  3. AMOXICILLIN [Suspect]
     Indication: HELICOBACTER INFECTION
     Dosage: 1 CARD DAILY
     Route: 048
     Dates: start: 20070417, end: 20070424
  4. AMBROXOL HYDROCHLORIDE [Suspect]
     Indication: DRUG USE FOR UNKNOWN INDICATION
     Route: 048

REACTIONS (5)
  - ASTHENIA [None]
  - DYSPNOEA [None]
  - EYELID OEDEMA [None]
  - LARYNGEAL OEDEMA [None]
  - RASH [None]
